FAERS Safety Report 20159138 (Version 1)
Quarter: 2021Q4

REPORT INFORMATION
  Report Type: Other
  Country: US (occurrence: None)
  Receive Date: 20211208
  Receipt Date: 20211208
  Transmission Date: 20220304
  Serious: Yes (Death)
  Sender: FDA-Public Use
  Company Number: US-ROCHE-2959259

PATIENT
  Sex: Female

DRUGS (1)
  1. XELODA [Suspect]
     Active Substance: CAPECITABINE
     Indication: Gastric cancer
     Dosage: TAKE 4 TABLETS BY MOUTH 2 TIMES A DAY FOR 7 DAYS SEPARATED BY 12 HOUR THEN 1 WEAK OFF
     Route: 048

REACTIONS (3)
  - Off label use [Unknown]
  - Death [Fatal]
  - Off label use [Unknown]
